FAERS Safety Report 22301199 (Version 1)
Quarter: 2023Q2

REPORT INFORMATION
  Report Type: Spontaneous
  Country: US (occurrence: US)
  Receive Date: 20230509
  Receipt Date: 20230509
  Transmission Date: 20230722
  Serious: No
  Sender: FDA-Public Use
  Company Number: US-SA-SAC20230505001154

PATIENT
  Sex: Female

DRUGS (1)
  1. DUPIXENT [Suspect]
     Active Substance: DUPILUMAB
     Indication: Dermatitis atopic
     Dosage: DOSE: 200MG/1.14ML PEN FREQUENCY: EVERY OTHER WEEK
     Route: 058
     Dates: start: 20230418

REACTIONS (1)
  - Pruritus [Not Recovered/Not Resolved]
